FAERS Safety Report 4694715-8 (Version None)
Quarter: 2005Q2

REPORT INFORMATION
  Report Type: 
  Country: None (occurrence: None)
  Receive Date: 20050617
  Receipt Date: 20050606
  Transmission Date: 20051028
  Serious: Yes (Other)
  Sender: FDA-Public Use
  Company Number: 200512358BCC

PATIENT
  Age: 62 Year
  Sex: Male
  Weight: 156.0374 kg

DRUGS (6)
  1. ALEVE ARTHRITIS [Suspect]
     Indication: ARTHRITIS
     Dosage: 440 MG TOTAL DAILY ORAL
     Route: 048
     Dates: start: 20050602, end: 20050604
  2. COZAAR [Concomitant]
  3. DYAZIDE [Concomitant]
  4. KLOR-CON [Concomitant]
  5. EQUATE [Concomitant]
  6. VITAMIN FROM THE DOCTOR [Concomitant]

REACTIONS (1)
  - BLOOD PRESSURE INCREASED [None]
